APPROVED DRUG PRODUCT: DEMEROL
Active Ingredient: MEPERIDINE HYDROCHLORIDE
Strength: 50MG/ML
Dosage Form/Route: INJECTABLE;INJECTION
Application: N021171 | Product #002 | TE Code: AP
Applicant: HOSPIRA INC
Approved: Approved Prior to Jan 1, 1982 | RLD: Yes | RS: Yes | Type: RX